FAERS Safety Report 7217815-7 (Version None)
Quarter: 2010Q4

REPORT INFORMATION
  Report Type: 
  Country: None (occurrence: None)
  Receive Date: 20101230
  Receipt Date: 20101220
  Transmission Date: 20110411
  Serious: Yes (Other)
  Sender: FDA-Public Use
  Company Number: TRP_07477_2010

PATIENT
  Sex: Male

DRUGS (1)
  1. INFERGEN [Suspect]
     Indication: HEPATITIS C
     Dosage: (DF DAILY)

REACTIONS (10)
  - DELUSION [None]
  - DRUG INEFFECTIVE [None]
  - DYSSTASIA [None]
  - FATIGUE [None]
  - INSOMNIA [None]
  - MANIA [None]
  - MENTAL DISORDER [None]
  - MYALGIA [None]
  - PRODUCT QUALITY ISSUE [None]
  - TESTICULAR ATROPHY [None]
